FAERS Safety Report 8477272-X (Version None)
Quarter: 2012Q2

REPORT INFORMATION
  Report Type: 
  Country: None (occurrence: None)
  Receive Date: 20120629
  Receipt Date: 20120619
  Transmission Date: 20120825
  Serious: Yes (Other)
  Sender: FDA-Public Use
  Company Number: CA-JNJFOC-20120609441

PATIENT
  Sex: Female
  Weight: 67 kg

DRUGS (8)
  1. REMICADE [Suspect]
     Indication: CROHN'S DISEASE
     Route: 042
     Dates: start: 20100916
  2. ADVAIR DISKUS 100/50 [Concomitant]
     Route: 065
  3. MESALAMINE [Concomitant]
     Route: 065
  4. IMMUNOGLOBULIN G [Concomitant]
     Indication: NUTRITIONAL SUPPORT
     Route: 065
  5. SINGULAIR [Concomitant]
     Route: 065
  6. NASONEX [Concomitant]
     Route: 065
  7. IMODIUM [Concomitant]
     Route: 065
  8. VITAMINS NOS [Concomitant]
     Indication: NUTRITIONAL SUPPORT
     Route: 065

REACTIONS (1)
  - SKIN PAPILLOMA [None]
